FAERS Safety Report 7942933-5 (Version None)
Quarter: 2011Q4

REPORT INFORMATION
  Report Type: 
  Country: None (occurrence: None)
  Receive Date: 20111128
  Receipt Date: 20111122
  Transmission Date: 20120403
  Serious: Yes (Hospitalization)
  Sender: FDA-Public Use
  Company Number: US-MERCK-1107USA01259

PATIENT
  Age: 79 Year
  Sex: Female

DRUGS (10)
  1. BONIVA [Concomitant]
     Route: 065
     Dates: start: 20101001
  2. VITAMINS (UNSPECIFIED) [Concomitant]
     Route: 065
     Dates: start: 19800101
  3. DYAZIDE [Concomitant]
     Indication: HYPERTENSION
     Route: 065
     Dates: start: 20000101
  4. FOSAMAX [Suspect]
     Indication: OSTEOPOROSIS
     Route: 048
     Dates: start: 19950101, end: 20100801
  5. PRAVASTATIN SODIUM [Concomitant]
     Indication: BLOOD CHOLESTEROL
     Route: 065
     Dates: start: 20080101
  6. CALCIUM (UNSPECIFIED) [Concomitant]
     Route: 065
     Dates: start: 19800101
  7. OMEPRAZOLE [Concomitant]
     Route: 065
     Dates: start: 20101021
  8. OMEGA-3 MARINE TRIGLYCERIDES [Concomitant]
     Route: 065
     Dates: start: 19800101
  9. LISINOPRIL [Concomitant]
     Indication: HYPERTENSION
     Route: 048
     Dates: start: 20000101
  10. CHOLECALCIFEROL [Concomitant]
     Route: 065
     Dates: start: 19800101

REACTIONS (2)
  - CATARACT [None]
  - FEMUR FRACTURE [None]
